FAERS Safety Report 9841500 (Version 1)
Quarter: 2014Q1

REPORT INFORMATION
  Report Type: Spontaneous
  Country: CH (occurrence: CH)
  Receive Date: 20140124
  Receipt Date: 20140124
  Transmission Date: 20141002
  Serious: Yes (Hospitalization)
  Sender: FDA-Public Use
  Company Number: CH-BAYER-2014-007342

PATIENT
  Age: 52 Year
  Sex: Male
  Weight: 95 kg

DRUGS (7)
  1. ASPIRIN CARDIO [Suspect]
     Indication: CORONARY ARTERY ANEURYSM
     Dosage: 100 MG, QD
     Route: 048
  2. CLEXANE [Interacting]
     Indication: CORONARY ARTERY ANEURYSM
     Dosage: 100 MG, BID
     Route: 058
     Dates: start: 20130217, end: 20130303
  3. TAZOBAC [Interacting]
     Indication: PNEUMONIA BACTERIAL
     Dosage: 1 DF, TID
     Route: 041
     Dates: start: 20130228, end: 20130309
  4. DISTRANEURIN [Concomitant]
     Indication: SLEEP DISORDER
     Dosage: 1 DF, QD
     Route: 048
     Dates: start: 20130301, end: 20130310
  5. HALOPERIDOL [Concomitant]
     Indication: DELIRIUM
     Dosage: 1 MG, TID
     Route: 040
     Dates: start: 20130226, end: 20130301
  6. CATAPRESSAN [Concomitant]
     Dosage: 600 ?G, QD
     Route: 041
     Dates: start: 20130227, end: 20130301
  7. SINTROM [Concomitant]
     Indication: CORONARY ARTERY ANEURYSM
     Dosage: UNK
     Route: 048
     Dates: end: 20130217

REACTIONS (4)
  - Myocardial infarction [Recovered/Resolved]
  - Anaemia [Recovered/Resolved]
  - Injection site haematoma [Recovered/Resolved]
  - Medication error [Recovered/Resolved]
